FAERS Safety Report 8860459 (Version 1)
Quarter: 2012Q4

REPORT INFORMATION
  Report Type: 
  Country: US (occurrence: US)
  Receive Date: 20121025
  Receipt Date: 20121025
  Transmission Date: 20130627
  Serious: No
  Sender: FDA-Public Use
  Company Number: US-BAYER-2012-112008

PATIENT
  Age: 76 Year
  Sex: Male

DRUGS (3)
  1. LEVITRA [Suspect]
     Indication: ERECTILE DYSFUNCTION
     Route: 048
  2. METFORMIN [Concomitant]
  3. GLUCOTROL [Concomitant]

REACTIONS (1)
  - Erectile dysfunction [None]
